FAERS Safety Report 26127144 (Version 2)
Quarter: 2025Q4

REPORT INFORMATION
  Report Type: Report from Study
  Country: CO (occurrence: CO)
  Receive Date: 20251205
  Receipt Date: 20251215
  Transmission Date: 20260117
  Serious: Yes (Hospitalization)
  Sender: ALEXION PHARMACEUTICALS
  Company Number: CO-AstraZeneca-CH-01007023A

PATIENT
  Age: 68 Year
  Sex: Male
  Weight: 79 kg

DRUGS (1)
  1. ACALABRUTINIB [Suspect]
     Active Substance: ACALABRUTINIB
     Indication: Chronic lymphocytic leukaemia
     Dosage: 100 MILLIGRAM, Q12H
     Route: 061
     Dates: start: 20250423

REACTIONS (4)
  - Dyspnoea [Recovering/Resolving]
  - Bone pain [Unknown]
  - Gait disturbance [Unknown]
  - Therapy cessation [Recovering/Resolving]

NARRATIVE: CASE EVENT DATE: 20251128
